FAERS Safety Report 9583668 (Version 3)
Quarter: 2014Q1

REPORT INFORMATION
  Report Type: Spontaneous
  Country: US (occurrence: US)
  Receive Date: 20131002
  Receipt Date: 20140303
  Transmission Date: 20141002
  Serious: No
  Sender: FDA-Public Use
  Company Number: US-AMGEN-USASP2013045213

PATIENT
  Age: 61 Year
  Sex: Female
  Weight: 63.49 kg

DRUGS (11)
  1. ENBREL [Suspect]
     Indication: PSORIASIS
     Dosage: 50 MG, 2 TIMES/WK
     Route: 058
     Dates: start: 201305
  2. JANUVIA [Concomitant]
     Dosage: 25 MG, UNK
     Route: 048
  3. PANTOPRAZOLE [Concomitant]
     Dosage: 20 MG, UNK
     Route: 048
  4. NABUMETONE [Concomitant]
     Dosage: 500 MG, UNK
     Route: 048
  5. GABAPENTIN [Concomitant]
     Dosage: 100 MG, UNK
     Route: 048
  6. METFORMIN [Concomitant]
     Dosage: 500 MG, UNK
     Route: 048
  7. LOSARTAN HCT [Concomitant]
     Dosage: 50-12.5, UNK
     Route: 048
  8. TACLONEX [Concomitant]
     Dosage: UNK
  9. SCALPEX [Concomitant]
     Dosage: UNK
  10. FOLIC ACID [Concomitant]
     Dosage: UNK
     Route: 048
  11. ADVIL                              /00109201/ [Concomitant]
     Dosage: 200 MG, UNK
     Route: 048

REACTIONS (9)
  - Headache [Recovering/Resolving]
  - Pyrexia [Recovering/Resolving]
  - Musculoskeletal stiffness [Unknown]
  - Lip dry [Recovering/Resolving]
  - Chapped lips [Recovering/Resolving]
  - Mucosal dryness [Unknown]
  - Dyspnoea [Unknown]
  - Fatigue [Unknown]
  - Oral herpes [Recovering/Resolving]
